FAERS Safety Report 15786725 (Version 5)
Quarter: 2019Q3

REPORT INFORMATION
  Report Type: Not Available
  Country: US (occurrence: US)
  Receive Date: 20190103
  Receipt Date: 20190813
  Transmission Date: 20191004
  Serious: No
  Sender: FDA-Public Use
  Company Number: US-NEUROCRINE BIOSCIENCES INC.-2018NBI03631

PATIENT
  Age: 67 Year
  Sex: Female
  Weight: 85.81 kg

DRUGS (31)
  1. ASPIRIN. [Concomitant]
     Active Substance: ASPIRIN
     Indication: CARDIAC FAILURE CONGESTIVE
  2. HYDROCHLOROTHIAZIDE. [Concomitant]
     Active Substance: HYDROCHLOROTHIAZIDE
     Indication: BLOOD PRESSURE MEASUREMENT
  3. TOLTERODINE [Concomitant]
     Active Substance: TOLTERODINE
  4. DIAZEPAM. [Concomitant]
     Active Substance: DIAZEPAM
     Indication: ANXIETY
  5. VITAMIN B6 [Concomitant]
     Active Substance: PYRIDOXINE HYDROCHLORIDE
     Dates: start: 201901
  6. INGREZZA [Suspect]
     Active Substance: VALBENAZINE
     Indication: TARDIVE DYSKINESIA
     Route: 048
     Dates: start: 20181026, end: 2019
  7. RESTORIL [Concomitant]
     Active Substance: TEMAZEPAM
  8. LEVETIRACETAM. [Concomitant]
     Active Substance: LEVETIRACETAM
     Indication: SEIZURE
  9. DEPAKOTE [Concomitant]
     Active Substance: DIVALPROEX SODIUM
     Indication: STRESS
  10. ZOFRAN [Concomitant]
     Active Substance: ONDANSETRON HYDROCHLORIDE
     Indication: NAUSEA
  11. ATORVASTATIN [Concomitant]
     Active Substance: ATORVASTATIN
     Indication: BLOOD CHOLESTEROL
  12. POTASSIUM CHLORIDE. [Concomitant]
     Active Substance: POTASSIUM CHLORIDE
     Indication: BLOOD POTASSIUM DECREASED
  13. ALPRAZOLAM. [Concomitant]
     Active Substance: ALPRAZOLAM
     Indication: ANXIETY
  14. LUNESTA [Concomitant]
     Active Substance: ESZOPICLONE
  15. RANITIDINE. [Concomitant]
     Active Substance: RANITIDINE
     Indication: DYSPEPSIA
  16. LORAZEPAM. [Concomitant]
     Active Substance: LORAZEPAM
     Indication: ANXIETY
     Dates: start: 20181219
  17. DEPAKOTE [Concomitant]
     Active Substance: DIVALPROEX SODIUM
     Indication: NERVOUSNESS
  18. DEPAKOTE [Concomitant]
     Active Substance: DIVALPROEX SODIUM
     Indication: AFFECTIVE DISORDER
  19. DULOXETINE. [Concomitant]
     Active Substance: DULOXETINE
     Indication: DEPRESSION
     Dosage: DECREASED DOWN TO 30 MG
     Route: 048
  20. INGREZZA [Suspect]
     Active Substance: VALBENAZINE
     Route: 048
     Dates: start: 20190715
  21. AMBIEN [Concomitant]
     Active Substance: ZOLPIDEM TARTRATE
  22. DULOXETINE. [Concomitant]
     Active Substance: DULOXETINE
     Route: 048
     Dates: start: 20190516
  23. GABAPENTIN. [Concomitant]
     Active Substance: GABAPENTIN
  24. DOXEPIN [Concomitant]
     Active Substance: DOXEPIN
  25. BENZTROPINE. [Concomitant]
     Active Substance: BENZTROPINE
  26. LISINOPRIL. [Concomitant]
     Active Substance: LISINOPRIL
  27. CRESTOR [Concomitant]
     Active Substance: ROSUVASTATIN CALCIUM
     Indication: BLOOD CHOLESTEROL
  28. LISINOPRIL. [Concomitant]
     Active Substance: LISINOPRIL
     Indication: BLOOD PRESSURE MEASUREMENT
     Dates: start: 201901
  29. DEPAKOTE [Concomitant]
     Active Substance: DIVALPROEX SODIUM
     Indication: ANXIETY
     Dosage: INCREASED ABOUT ONE WEEK AGO FROM 1000 MG
     Route: 048
     Dates: start: 20181218, end: 20180715
  30. PROPRANOLOL [Concomitant]
     Active Substance: PROPRANOLOL HYDROCHLORIDE
  31. LACTOBACILLUS ACIDOPHILUS [Concomitant]
     Active Substance: LACTOBACILLUS ACIDOPHILUS

REACTIONS (11)
  - Gait disturbance [Unknown]
  - Fall [Unknown]
  - Decreased appetite [Recovering/Resolving]
  - Bradyphrenia [Recovering/Resolving]
  - Pruritus [Unknown]
  - Therapeutic product effect decreased [None]
  - Insomnia [Not Recovered/Not Resolved]
  - Rash pruritic [Unknown]
  - Weight decreased [Recovering/Resolving]
  - Balance disorder [Unknown]
  - Drug interaction [Unknown]

NARRATIVE: CASE EVENT DATE: 201901
